FAERS Safety Report 7454270-6 (Version None)
Quarter: 2011Q2

REPORT INFORMATION
  Report Type: 
  Country: None (occurrence: None)
  Receive Date: 20110503
  Receipt Date: 20110321
  Transmission Date: 20111010
  Serious: Yes (Hospitalization, Other)
  Sender: FDA-Public Use
  Company Number: US-BAYER-201035819NA

PATIENT
  Age: 50 Year
  Sex: Female

DRUGS (16)
  1. YASMIN [Suspect]
     Indication: CONTRACEPTION
     Route: 048
     Dates: start: 20050101, end: 20100428
  2. PEPCID [Concomitant]
     Dosage: 20 MG, UNK
     Route: 048
  3. YAZ [Suspect]
     Indication: CONTRACEPTION
     Dosage: UNK UNK, UNK
     Route: 048
     Dates: start: 20050101, end: 20100428
  4. HEPARIN [Concomitant]
     Route: 058
  5. FLONASE [Concomitant]
     Route: 048
  6. KLONOPIN [Concomitant]
     Dosage: 0.5 MG, UNK
     Route: 048
  7. ULTRACET [Concomitant]
     Route: 048
  8. ACIPHEX [Concomitant]
     Dosage: 10 MG, UNK
     Route: 048
  9. ZYRTEC [Concomitant]
     Dosage: 10 MG, UNK
     Route: 048
  10. COZAAR [Concomitant]
     Dosage: 50 MG, UNK
     Route: 048
  11. ASPIRIN [Concomitant]
     Dosage: 81 MG, UNK
     Route: 048
  12. PROZAC [Concomitant]
     Dosage: 20 MG, UNK
     Route: 048
  13. OCELLA [Suspect]
     Indication: CONTRACEPTION
     Dosage: UNK UNK, UNK
     Route: 048
  14. LEVAQUIN [Concomitant]
     Dosage: UNK
     Route: 048
     Dates: start: 20060516
  15. TRAMADOL [Concomitant]
     Dosage: 50 MG, UNK
     Route: 048
  16. CLARITIN [Concomitant]
     Dosage: 10 MG, UNK
     Route: 048

REACTIONS (2)
  - CEREBROVASCULAR ACCIDENT [None]
  - GALLBLADDER DISORDER [None]
